FAERS Safety Report 14577919 (Version 2)
Quarter: 2018Q1

REPORT INFORMATION
  Report Type: Other
  Country: ES (occurrence: ES)
  Receive Date: 20180227
  Receipt Date: 20180307
  Transmission Date: 20180509
  Serious: Yes (Life-Threatening, Hospitalization, Other)
  Sender: FDA-Public Use
  Company Number: ES-ALEXION PHARMACEUTICALS INC-A201503618

PATIENT
  Age: 23 Year
  Sex: Male

DRUGS (6)
  1. SOLIRIS [Suspect]
     Active Substance: ECULIZUMAB
     Indication: PAROXYSMAL NOCTURNAL HAEMOGLOBINURIA
     Dosage: UNK
     Route: 065
     Dates: start: 20100115
  2. BEXSERO [Suspect]
     Active Substance: MENINGOCOCCAL GROUP B VACCINE
     Dosage: UNK
     Route: 065
     Dates: start: 20141120, end: 20141120
  3. SOLIRIS [Suspect]
     Active Substance: ECULIZUMAB
     Dosage: 600 MG, QW
     Route: 042
     Dates: start: 20100119, end: 201002
  4. SOLIRIS [Suspect]
     Active Substance: ECULIZUMAB
     Dosage: 900 MG, Q2W
     Route: 042
     Dates: start: 201002
  5. BEXSERO [Suspect]
     Active Substance: MENINGOCOCCAL GROUP B VACCINE
     Indication: PROPHYLAXIS
     Dosage: UNK
     Route: 065
  6. BEXSERO [Suspect]
     Active Substance: MENINGOCOCCAL GROUP B VACCINE
     Dosage: UNK
     Route: 065
     Dates: start: 20141009, end: 20141009

REACTIONS (11)
  - Meningococcal sepsis [Recovered/Resolved]
  - Acute kidney injury [Recovering/Resolving]
  - Tachycardia [Recovering/Resolving]
  - Hypotension [Recovering/Resolving]
  - Myalgia [Recovering/Resolving]
  - Ear pain [Recovering/Resolving]
  - Coagulopathy [Recovering/Resolving]
  - Meningitis [Recovered/Resolved with Sequelae]
  - Pyrexia [Recovering/Resolving]
  - Oropharyngeal discomfort [Recovering/Resolving]
  - Vaccination failure [Recovered/Resolved]

NARRATIVE: CASE EVENT DATE: 20150817
